FAERS Safety Report 16398396 (Version 1)
Quarter: 2019Q2

REPORT INFORMATION
  Report Type: Spontaneous
  Country: GB (occurrence: GB)
  Receive Date: 20190606
  Receipt Date: 20190606
  Transmission Date: 20190711
  Serious: Yes (Other)
  Sender: FDA-Public Use
  Company Number: GB-PFIZER INC-2019237695

PATIENT

DRUGS (3)
  1. MERONEM [Suspect]
     Active Substance: MEROPENEM
     Dosage: UNK, 3X/DAY
  2. EPANUTIN [Suspect]
     Active Substance: PHENYTOIN SODIUM
     Dosage: UNK
  3. GLUCOSE [Suspect]
     Active Substance: DEXTROSE
     Dosage: 5 %, 3X/DAY

REACTIONS (2)
  - Product deposit [Unknown]
  - Deep vein thrombosis [Unknown]
